FAERS Safety Report 13763911 (Version 1)
Quarter: 2017Q3

REPORT INFORMATION
  Report Type: Spontaneous
  Country: CH (occurrence: CH)
  Receive Date: 20170718
  Receipt Date: 20170718
  Transmission Date: 20171127
  Serious: Yes (Other)
  Sender: FDA-Public Use
  Company Number: CH-LPDUSPRD-20170996

PATIENT
  Age: 48 Year
  Sex: Female
  Weight: 65 kg

DRUGS (2)
  1. CYANOCOBALAMIN. [Concomitant]
     Active Substance: CYANOCOBALAMIN
     Dosage: UNKNOWN
     Route: 065
  2. FERINJECT [Suspect]
     Active Substance: FERRIC CARBOXYMALTOSE
     Dosage: 1000 MG
     Route: 041
     Dates: start: 20170515, end: 20170515

REACTIONS (2)
  - Hypoxia [Unknown]
  - Hypotension [Unknown]

NARRATIVE: CASE EVENT DATE: 20170615
